FAERS Safety Report 10185786 (Version 3)
Quarter: 2014Q2

REPORT INFORMATION
  Report Type: Spontaneous
  Country: US (occurrence: US)
  Receive Date: 20140521
  Receipt Date: 20140606
  Transmission Date: 20141212
  Serious: Yes (Other)
  Sender: FDA-Public Use
  Company Number: US-JNJFOC-20140511602

PATIENT
  Age: 59 Year
  Sex: Male

DRUGS (8)
  1. OLYSIO [Suspect]
     Indication: HEPATITIS C
     Route: 048
     Dates: start: 20140418, end: 20140516
  2. OLYSIO [Suspect]
     Indication: HEPATITIS C
     Route: 048
     Dates: start: 20140517
  3. SOVALDI [Suspect]
     Indication: HEPATITIS C
     Route: 048
     Dates: start: 20140517
  4. SOVALDI [Suspect]
     Indication: HEPATITIS C
     Route: 048
     Dates: start: 20140418, end: 20140516
  5. COREG [Concomitant]
     Indication: HYPERTENSION
     Route: 048
  6. COZAAR [Concomitant]
     Indication: HYPERTENSION
     Route: 048
  7. GLUMETZA [Concomitant]
     Indication: TYPE 2 DIABETES MELLITUS
     Route: 048
  8. TRADJENTA [Concomitant]
     Indication: TYPE 2 DIABETES MELLITUS
     Route: 048

REACTIONS (3)
  - Blood creatinine increased [Unknown]
  - Renal failure [Unknown]
  - Off label use [Unknown]
